FAERS Safety Report 5340237-0 (Version None)
Quarter: 2007Q2

REPORT INFORMATION
  Report Type: 
  Country: None (occurrence: None)
  Receive Date: 20070531
  Receipt Date: 20070517
  Transmission Date: 20071010
  Serious: Yes (Hospitalization, Other)
  Sender: FDA-Public Use
  Company Number: US-NOVOPROD-263772

PATIENT
  Sex: Male
  Weight: 76 kg

DRUGS (10)
  1. NORDITROPIN NORDIFLEX [Suspect]
     Indication: GROWTH HORMONE DEFICIENCY
     Dosage: 3.9 MG, QD
     Route: 058
     Dates: start: 20070420, end: 20070510
  2. PREDNISONE                         /00044702/ [Concomitant]
     Indication: CUSHING'S SYNDROME
     Dosage: UNK, UNK
  3. PROGRAF [Concomitant]
     Indication: ILL-DEFINED DISORDER
  4. ZESTRIL [Concomitant]
     Indication: ILL-DEFINED DISORDER
  5. PHOSLO [Concomitant]
     Indication: PROPHYLAXIS
  6. ZYRTEC [Concomitant]
     Indication: SEASONAL ALLERGY
  7. ALBUTEROL                          /00139501/ [Concomitant]
     Indication: ASTHMA
  8. GLUCOPHAGE [Concomitant]
     Indication: INSULIN RESISTANCE
  9. ZETIA [Concomitant]
     Indication: BLOOD CHOLESTEROL INCREASED
  10. CIPRODEX                           /00697202/ [Concomitant]
     Indication: EAR INFECTION

REACTIONS (4)
  - BLOOD PRESSURE INCREASED [None]
  - EYE HAEMORRHAGE [None]
  - MIGRAINE [None]
  - VISUAL ACUITY REDUCED [None]
